FAERS Safety Report 4546787-9 (Version None)
Quarter: 2005Q1

REPORT INFORMATION
  Report Type: 
  Country: None (occurrence: None)
  Receive Date: 20050105
  Receipt Date: 20041221
  Transmission Date: 20050727
  Serious: Yes (Hospitalization)
  Sender: FDA-Public Use
  Company Number: 2004215525PL

PATIENT
  Age: 69 Year
  Sex: Male

DRUGS (7)
  1. IRINOTECAN HCL [Suspect]
     Indication: COLON CANCER
     Dosage: 360 MG (CYCLICAL), INTRAVENOUS
     Route: 042
     Dates: start: 20011108, end: 20020227
  2. FLUOROURACIL [Suspect]
     Indication: COLON CANCER
     Dosage: 2000 MG (CYCLICAL), INTRAVENOUS
     Route: 042
     Dates: start: 20041108, end: 20020228
  3. LEUCOVORIN CALCIUM [Suspect]
     Indication: COLON CANCER
     Dosage: 400 MG (CYCLICAL), INTRAVENOUS
     Route: 042
     Dates: start: 20011108, end: 20020228
  4. DEXAMETHASONE [Suspect]
     Indication: PROPHYLAXIS OF NAUSEA AND VOMITING
     Dosage: 8 MG, INTRAVENOUS
     Route: 042
     Dates: start: 20011108, end: 20020228
  5. ISOSORBIDE MONONITRATE [Concomitant]
  6. AMLODIPINE BESYLATE [Concomitant]
  7. ASPIRIN [Concomitant]

REACTIONS (1)
  - DIABETES MELLITUS [None]
